FAERS Safety Report 22124247 (Version 3)
Quarter: 2023Q2

REPORT INFORMATION
  Report Type: Spontaneous
  Country: US (occurrence: US)
  Receive Date: 20230322
  Receipt Date: 20230428
  Transmission Date: 20230722
  Serious: No
  Sender: FDA-Public Use
  Company Number: US-UNITED THERAPEUTICS-UNT-2023-002762

PATIENT
  Age: 46 Year
  Sex: Female
  Weight: 117.91 kg

DRUGS (7)
  1. REMODULIN [Suspect]
     Active Substance: TREPROSTINIL
     Indication: Pulmonary arterial hypertension
     Dosage: 0.04 ?G/KG (SELF-FILLED WITH 2.3 ML PER CASSETTE; AT PUMP RATE OF 25 MCL PER HOUR), CONTINUING
     Route: 058
  2. REMODULIN [Suspect]
     Active Substance: TREPROSTINIL
     Dosage: 0.04919 ?G/KG, CONTINUING
     Route: 058
  3. REMODULIN [Suspect]
     Active Substance: TREPROSTINIL
     Dosage: 0.05208 ?G/KG, CONTINUING
     Route: 058
  4. REMODULIN [Suspect]
     Active Substance: TREPROSTINIL
     Dosage: 0.05787 ?G/KG (AT THE PUMP RATE OF 40 UL/HR), CONTINUING
     Route: 058
     Dates: start: 20230410
  5. REMODULIN [Suspect]
     Active Substance: TREPROSTINIL
     Dosage: 0.05932 ?G/KG (AT THE PUMP RATE OF 41 UL/HR), CONTINUING
     Route: 058
     Dates: start: 20230418
  6. REMODULIN [Suspect]
     Active Substance: TREPROSTINIL
     Dosage: UNK UNK, CONTINUING
     Route: 058
     Dates: start: 20220922
  7. ADEMPAS [Concomitant]
     Active Substance: RIOCIGUAT
     Indication: Product used for unknown indication
     Dosage: UNK
     Route: 065

REACTIONS (10)
  - Infusion site pruritus [Unknown]
  - Infusion site pain [Unknown]
  - Epistaxis [Unknown]
  - Infusion site erythema [Unknown]
  - Infusion site inflammation [Unknown]
  - Diarrhoea [Unknown]
  - Nausea [Recovered/Resolved]
  - Fatigue [Unknown]
  - Vomiting [Recovered/Resolved]
  - Headache [Recovering/Resolving]

NARRATIVE: CASE EVENT DATE: 20230306
